FAERS Safety Report 7544402-3 (Version None)
Quarter: 2011Q2

REPORT INFORMATION
  Report Type: 
  Country: None (occurrence: None)
  Receive Date: 20110613
  Receipt Date: 20080731
  Transmission Date: 20111010
  Serious: Yes (Other)
  Sender: FDA-Public Use
  Company Number: PHHY2008JP16642

PATIENT
  Sex: Female

DRUGS (7)
  1. LEVOTHYROXINE SODIUM [Concomitant]
     Dosage: 75 UG, UNK
     Route: 048
     Dates: start: 20050218
  2. ALOSENN [Concomitant]
     Dosage: 1.5 MG, UNK
     Route: 048
     Dates: start: 20040721
  3. CORTRIL [Concomitant]
     Dosage: 20 MG, UNK
     Route: 048
     Dates: start: 20040721
  4. TOLEDOMIN [Concomitant]
     Dosage: 15 MG, UNK
     Route: 048
     Dates: start: 20050121
  5. NORVASC [Concomitant]
     Dosage: 5 MG, UNK
     Route: 048
     Dates: start: 20050419
  6. CANDESARTAN CILEXETIL [Concomitant]
     Dosage: 8 MG, UNK
     Route: 048
     Dates: start: 20040721
  7. SANDOSTATIN LAR [Suspect]
     Indication: ACROMEGALY
     Dosage: 20 MG, QMO
     Route: 030
     Dates: start: 20041125, end: 20070206

REACTIONS (2)
  - GENERAL PHYSICAL HEALTH DETERIORATION [None]
  - HEPATIC NEOPLASM [None]
